FAERS Safety Report 25597131 (Version 2)
Quarter: 2025Q4

REPORT INFORMATION
  Report Type: Report from Study
  Country: US (occurrence: US)
  Receive Date: 20250723
  Receipt Date: 20251114
  Transmission Date: 20260118
  Serious: Yes (Other)
  Sender: ABBVIE
  Company Number: US-ABBVIE-6380780

PATIENT
  Age: 67 Year
  Sex: Male

DRUGS (2)
  1. SKYRIZI [Suspect]
     Active Substance: RISANKIZUMAB-RZAA
     Indication: Crohn^s disease
     Route: 058
     Dates: start: 20250415
  2. SKYRIZI [Suspect]
     Active Substance: RISANKIZUMAB-RZAA
     Dosage: LAST ADMIN: 2025
     Route: 058
     Dates: start: 20250318

REACTIONS (7)
  - Hepatic cancer [Unknown]
  - Pruritus [Recovering/Resolving]
  - Umbilical hernia [Unknown]
  - Cholecystectomy [Unknown]
  - Rash [Not Recovered/Not Resolved]
  - Wound haemorrhage [Unknown]
  - Pain [Unknown]

NARRATIVE: CASE EVENT DATE: 20250101
